FAERS Safety Report 5718511-5 (Version None)
Quarter: 2008Q2

REPORT INFORMATION
  Report Type: 
  Country: None (occurrence: None)
  Receive Date: 20080425
  Receipt Date: 20080415
  Transmission Date: 20081010
  Serious: Yes (Life-Threatening, Hospitalization, Other)
  Sender: FDA-Public Use
  Company Number: US-PFIZER INC-2008033682

PATIENT
  Sex: Male
  Weight: 40.8 kg

DRUGS (5)
  1. DILANTIN [Suspect]
     Indication: EPILEPSY
  2. ATIVAN [Suspect]
  3. PHENOBARBITAL TAB [Suspect]
  4. TENEX [Concomitant]
  5. KEPPRA [Concomitant]

REACTIONS (4)
  - ANTICONVULSANT DRUG LEVEL DECREASED [None]
  - BRAIN INJURY [None]
  - GRAND MAL CONVULSION [None]
  - UNEVALUABLE EVENT [None]
